FAERS Safety Report 26090852 (Version 1)
Quarter: 2025Q4

REPORT INFORMATION
  Report Type: Spontaneous
  Country: EU (occurrence: EU)
  Receive Date: 20251126
  Receipt Date: 20251126
  Transmission Date: 20260117
  Serious: Yes (Hospitalization, Other)
  Sender: AUROBINDO
  Company Number: EU-AstrazenecaRSG-7006-D926QC00001(Prod)000013

PATIENT
  Sex: Female
  Weight: 75 kg

DRUGS (39)
  1. CARBOPLATIN [Suspect]
     Active Substance: CARBOPLATIN
     Indication: Non-small cell lung cancer
     Dosage: 1.2 UNK
     Route: 065
     Dates: start: 20250813, end: 20250813
  2. CARBOPLATIN [Suspect]
     Active Substance: CARBOPLATIN
     Dosage: 1.2 UNK
     Route: 065
     Dates: start: 20250827, end: 20250827
  3. CARBOPLATIN [Suspect]
     Active Substance: CARBOPLATIN
     Dosage: 1.5 UNK
     Route: 065
     Dates: start: 20250714, end: 20250714
  4. CARBOPLATIN [Suspect]
     Active Substance: CARBOPLATIN
     Dosage: 1.5 UNK
     Route: 065
     Dates: start: 20250729, end: 20250729
  5. CARBOPLATIN [Suspect]
     Active Substance: CARBOPLATIN
     Dosage: 1.2 UNK
     Route: 065
     Dates: start: 20250806, end: 20250806
  6. CARBOPLATIN [Suspect]
     Active Substance: CARBOPLATIN
     Dosage: 1.2 UNK
     Route: 065
     Dates: start: 20250903, end: 20250903
  7. CARBOPLATIN [Suspect]
     Active Substance: CARBOPLATIN
     Dosage: 1.5 UNK
     Route: 065
     Dates: start: 20250626, end: 20250726
  8. CARBOPLATIN [Suspect]
     Active Substance: CARBOPLATIN
     Dosage: 1.5 UNK
     Route: 065
     Dates: start: 20250703, end: 20250703
  9. CARBOPLATIN [Suspect]
     Active Substance: CARBOPLATIN
     Dosage: 1.2 UNK
     Route: 065
     Dates: start: 20250910, end: 20250910
  10. CARBOPLATIN [Suspect]
     Active Substance: CARBOPLATIN
     Dosage: 1.5 UNK
     Route: 065
  11. PACLITAXEL [Suspect]
     Active Substance: PACLITAXEL
     Indication: Non-small cell lung cancer
     Dosage: 64 MILLIGRAM/SQ. METER
     Route: 065
     Dates: start: 20250903, end: 20250903
  12. PACLITAXEL [Suspect]
     Active Substance: PACLITAXEL
     Dosage: 80 MILLIGRAM/SQ. METER
     Route: 065
     Dates: start: 20250714, end: 20250714
  13. PACLITAXEL [Suspect]
     Active Substance: PACLITAXEL
     Dosage: 80 MILLIGRAM/SQ. METER
     Route: 065
     Dates: start: 20250626, end: 20250726
  14. PACLITAXEL [Suspect]
     Active Substance: PACLITAXEL
     Dosage: 64 MILLIGRAM/SQ. METER
     Route: 065
     Dates: start: 20250806, end: 20250806
  15. PACLITAXEL [Suspect]
     Active Substance: PACLITAXEL
     Dosage: 80 MILLIGRAM/SQ. METER
     Route: 065
     Dates: start: 20250703, end: 20250703
  16. PACLITAXEL [Suspect]
     Active Substance: PACLITAXEL
     Dosage: 80 MILLIGRAM/SQ. METER
     Route: 065
     Dates: start: 20250729, end: 20250729
  17. PACLITAXEL [Suspect]
     Active Substance: PACLITAXEL
     Dosage: 64 MILLIGRAM/SQ. METER
     Route: 065
     Dates: start: 20250813, end: 20250813
  18. PACLITAXEL [Suspect]
     Active Substance: PACLITAXEL
     Dosage: 80 MILLIGRAM/SQ. METER
     Route: 065
     Dates: start: 20250722, end: 20250722
  19. PACLITAXEL [Suspect]
     Active Substance: PACLITAXEL
     Dosage: 64 MILLIGRAM/SQ. METER
     Route: 065
     Dates: start: 20250910, end: 20250910
  20. PACLITAXEL [Suspect]
     Active Substance: PACLITAXEL
     Dosage: 64 MILLIGRAM/SQ. METER
     Route: 065
  21. DOXORUBICIN [Suspect]
     Active Substance: DOXORUBICIN
     Indication: Non-small cell lung cancer
     Dosage: 60 MILLIGRAM/SQ. METER
     Route: 065
     Dates: start: 20251010, end: 20251010
  22. PEMBROLIZUMAB [Suspect]
     Active Substance: PEMBROLIZUMAB
     Indication: Non-small cell lung cancer
     Dosage: 200 MILLIGRAM
     Route: 065
     Dates: start: 20250722, end: 20250722
  23. PEMBROLIZUMAB [Suspect]
     Active Substance: PEMBROLIZUMAB
     Dosage: 200 MILLIGRAM
     Route: 065
     Dates: start: 20251010, end: 20251010
  24. PEMBROLIZUMAB [Suspect]
     Active Substance: PEMBROLIZUMAB
     Dosage: 200 MILLIGRAM
     Route: 065
     Dates: start: 20250726, end: 20250726
  25. PEMBROLIZUMAB [Suspect]
     Active Substance: PEMBROLIZUMAB
     Dosage: 200 MILLIGRAM
     Route: 065
     Dates: start: 20250813, end: 20250813
  26. PEMBROLIZUMAB [Suspect]
     Active Substance: PEMBROLIZUMAB
     Dosage: 200 MILLIGRAM
     Route: 065
  27. CYCLOPHOSPHAMIDE [Suspect]
     Active Substance: CYCLOPHOSPHAMIDE
     Indication: Non-small cell lung cancer
     Dosage: 600 MILLIGRAM/SQ. METER
     Route: 065
     Dates: start: 20251010, end: 20251010
  28. ESOMEPRAZOLE MAGNESIUM [Concomitant]
     Active Substance: ESOMEPRAZOLE MAGNESIUM
     Indication: Abdominal pain upper
     Dosage: 20 MILLIGRAM, TWO TIMES A DAY
     Dates: start: 20250729, end: 20250806
  29. PITAVASTATIN CALCIUM [Concomitant]
     Active Substance: PITAVASTATIN CALCIUM
     Indication: Dyslipidaemia
     Dosage: 1 MILLIGRAM, DAILY
  30. DEXAMETHASONE ACETATE [Concomitant]
     Active Substance: DEXAMETHASONE ACETATE
     Indication: Nausea
     Dosage: 4 MILLIGRAM, TWO TIMES A DAY
     Dates: start: 20250910, end: 20250912
  31. FAMOTIDINE [Concomitant]
     Active Substance: FAMOTIDINE
     Indication: Abdominal pain upper
     Dosage: 20 MILLIGRAM, DAILY
  32. ALMAX FORTE [Concomitant]
     Indication: Abdominal pain upper
     Dosage: 1.5 GRAM, AS NECESSARY
     Dates: start: 20250729
  33. LEVOTHYROXINE SODIUM [Concomitant]
     Active Substance: LEVOTHYROXINE SODIUM
     Indication: Hypothyroidism
     Dosage: 88 MICROGRAM, DAILY
  34. BRUDYAL [Concomitant]
     Indication: Ocular surface disease
     Dosage: UNK UNK, 3 TIMES A DAY
     Dates: start: 20250617
  35. OMEPRAZOL [OMEPRAZOLE SODIUM] [Concomitant]
     Indication: Gastritis prophylaxis
     Dosage: 20 MILLIGRAM, DAILY
     Dates: start: 20250729, end: 20250729
  36. LORMETAZEPAM [Concomitant]
     Active Substance: LORMETAZEPAM
     Indication: Depression
     Dosage: 0.5 MILLIGRAM, DAILY
  37. CHOLECALCIFEROL [Concomitant]
     Active Substance: CHOLECALCIFEROL
     Indication: Osteoporosis
     Dosage: 25000 INTERNATIONAL UNIT  PER MONTH
  38. SERTRALINE HYDROCHLORIDE [Concomitant]
     Active Substance: SERTRALINE HYDROCHLORIDE
     Indication: Depression
     Dosage: 50 MILLIGRAM, DAILY
  39. MOTILIUM [Concomitant]
     Active Substance: DOMPERIDONE
     Indication: Antiemetic supportive care
     Dosage: 10 MILLIGRAM, 3 TIMES A DAY
     Dates: start: 20250910

REACTIONS (1)
  - Febrile neutropenia [Recovered/Resolved]

NARRATIVE: CASE EVENT DATE: 20251024
